FAERS Safety Report 16642327 (Version 3)
Quarter: 2019Q4

REPORT INFORMATION
  Report Type: Report from Study
  Country: LT (occurrence: LT)
  Receive Date: 20190729
  Receipt Date: 20191002
  Transmission Date: 20200122
  Serious: Yes (Life-Threatening, Hospitalization)
  Sender: FDA-Public Use
  Company Number: LT-REGENERON PHARMACEUTICALS, INC.-2019-44614

PATIENT

DRUGS (9)
  1. FILGRASTIM [Concomitant]
     Active Substance: FILGRASTIM
     Dosage: 30 MILLION IU, QD
     Route: 058
     Dates: start: 20190318, end: 20190320
  2. CARBOPLATIN. [Suspect]
     Active Substance: CARBOPLATIN
     Indication: NON-SMALL CELL LUNG CANCER STAGE IV
     Dosage: AUC 5 OR 6 MG/ML/MIN, Q3W
     Route: 042
     Dates: start: 20190221
  3. FILGRASTIM [Concomitant]
     Active Substance: FILGRASTIM
     Indication: NEUTROPENIA
     Dosage: 30 MILLION IU, QD
     Route: 058
     Dates: start: 20190313, end: 20190313
  4. ERYTHROCYTES TRANSFUSION [Concomitant]
     Indication: ANAEMIA
     Dosage: 2 PACKS, QD
     Route: 042
     Dates: start: 20190320, end: 20190320
  5. CEMIPLIMAB [Suspect]
     Active Substance: CEMIPLIMAB
     Indication: NON-SMALL CELL LUNG CANCER STAGE IV
     Dosage: 350 MG, Q3W
     Route: 042
     Dates: start: 20190221
  6. PARACETAMOL [Concomitant]
     Active Substance: ACETAMINOPHEN
     Indication: PYREXIA
     Dosage: 500 MG, BID
     Route: 048
     Dates: start: 20190223, end: 20190224
  7. GEMCITABINE. [Suspect]
     Active Substance: GEMCITABINE
     Indication: NON-SMALL CELL LUNG CANCER STAGE IV
     Dosage: 1250 MG/M2, Q3W
     Route: 042
     Dates: start: 20190221
  8. RINGER ACETATE [Concomitant]
     Active Substance: CALCIUM CHLORIDE\POTASSIUM CHLORIDE\SODIUM ACETATE
     Indication: PYREXIA
     Dosage: 500 ML, QD
     Route: 042
     Dates: start: 20190225, end: 20190225
  9. MELOXICAMUM [Concomitant]
     Indication: PROPHYLAXIS
     Dosage: 15 MG, PRN
     Route: 048

REACTIONS (1)
  - Febrile neutropenia [Recovered/Resolved]

NARRATIVE: CASE EVENT DATE: 20190325
